FAERS Safety Report 5292244-4 (Version None)
Quarter: 2007Q2

REPORT INFORMATION
  Report Type: 
  Country: None (occurrence: None)
  Receive Date: 20070410
  Receipt Date: 20070326
  Transmission Date: 20071010
  Serious: Yes (Hospitalization, Other)
  Sender: FDA-Public Use
  Company Number: US-PFIZER INC-2006154593

PATIENT
  Sex: Female
  Weight: 113.4 kg

DRUGS (1)
  1. CELEBREX [Suspect]
     Indication: ARTHRITIS
     Route: 048

REACTIONS (3)
  - DEEP VEIN THROMBOSIS [None]
  - DEPRESSION [None]
  - THROMBOSIS [None]
